FAERS Safety Report 8153200-1 (Version None)
Quarter: 2012Q1

REPORT INFORMATION
  Report Type: 
  Country: None (occurrence: None)
  Receive Date: 20120103
  Receipt Date: 20111026
  Transmission Date: 20120608
  Serious: No
  Sender: FDA-Public Use
  Company Number: AE-2011-002726

PATIENT
  Age: 49 Year
  Sex: Female
  Weight: 5.0848 kg

DRUGS (4)
  1. INCIVEK [Suspect]
     Dosage: 2250 MG (750 MG,1 IN 8 HR),ORAL
     Route: 048
     Dates: start: 20110729, end: 20111021
  2. RIBAVIRIN [Concomitant]
  3. PEGASYS [Concomitant]
  4. BENADRYL [Concomitant]

REACTIONS (1)
  - RASH PRURITIC [None]
